FAERS Safety Report 8988030 (Version 1)
Quarter: 2012Q4

REPORT INFORMATION
  Report Type: 
  Country: US (occurrence: US)
  Receive Date: 20121227
  Receipt Date: 20121227
  Transmission Date: 20130627
  Serious: Yes (Hospitalization)
  Sender: FDA-Public Use
  Company Number: US-NOVOPROD-367655

PATIENT
  Age: 51 Year
  Sex: Female
  Weight: 40.82 kg

DRUGS (2)
  1. LEVEMIR [Suspect]
     Indication: DIABETES MELLITUS
     Dosage: 6U in am, 4U in pm
     Route: 058
     Dates: start: 201208, end: 201211
  2. NOVOLOG [Concomitant]
     Indication: DIABETES MELLITUS
     Dosage: 3 U, tid
     Route: 058
     Dates: start: 201208

REACTIONS (4)
  - Clavicle fracture [Not Recovered/Not Resolved]
  - Rib fracture [Not Recovered/Not Resolved]
  - Road traffic accident [Recovered/Resolved]
  - Hypoglycaemic unconsciousness [Recovered/Resolved]
